FAERS Safety Report 12834407 (Version 1)
Quarter: 2016Q4

REPORT INFORMATION
  Report Type: Spontaneous
  Country: US (occurrence: US)
  Receive Date: 20161010
  Receipt Date: 20161010
  Transmission Date: 20170207
  Serious: Yes (Other)
  Sender: FDA-Public Use
  Company Number: US-TEVA-699224USA

PATIENT
  Sex: Female

DRUGS (2)
  1. PROVIGIL [Suspect]
     Active Substance: MODAFINIL
     Indication: SOMNOLENCE
     Route: 065
     Dates: end: 2011
  2. PROVIGIL [Suspect]
     Active Substance: MODAFINIL
     Indication: CONCUSSION

REACTIONS (6)
  - Reaction to drug excipients [Unknown]
  - Cardiac operation [Recovered/Resolved]
  - Somnolence [Not Recovered/Not Resolved]
  - Product use issue [Unknown]
  - Off label use [Recovered/Resolved]
  - Neoplasm malignant [Unknown]

NARRATIVE: CASE EVENT DATE: 2011
